FAERS Safety Report 10279759 (Version 1)
Quarter: 2014Q3

REPORT INFORMATION
  Report Type: Spontaneous
  Country: FR (occurrence: None)
  Receive Date: 20140702
  Receipt Date: 20140702
  Transmission Date: 20150326
  Serious: Yes (Other)
  Sender: FDA-Public Use
  Company Number: 2412948

PATIENT
  Age: 30 Year
  Sex: Female

DRUGS (4)
  1. (OXYCONTIN) [Concomitant]
  2. (LYRICA) [Concomitant]
  3. PAMIDRONIC ACID [Suspect]
     Active Substance: PAMIDRONIC ACID
     Indication: COMPLEX REGIONAL PAIN SYNDROME
     Dosage: 60 MG( 1 DAY)  (NOT OTHERWISE SPECIFIED)
     Route: 042
     Dates: start: 20140327, end: 20140425
  4. (ACUPAN) [Concomitant]

REACTIONS (2)
  - Thrombophlebitis superficial [None]
  - Phlebitis [None]

NARRATIVE: CASE EVENT DATE: 20140430
